FAERS Safety Report 9469682 (Version 2)
Quarter: 2013Q3

REPORT INFORMATION
  Report Type: Report from Study
  Country: US (occurrence: US)
  Receive Date: 20130822
  Receipt Date: 20130822
  Transmission Date: 20140515
  Serious: No
  Sender: FDA-Public Use
  Company Number: PHEH2012US022855

PATIENT
  Age: 57 Year
  Sex: Female

DRUGS (32)
  1. TASIGNA [Suspect]
     Indication: ACUTE LYMPHOCYTIC LEUKAEMIA
     Dosage: 400 MG, BID
     Route: 048
     Dates: start: 201101
  2. TASIGNA [Suspect]
     Indication: OFF LABEL USE
  3. NATEGLINIDE [Concomitant]
     Dosage: UNK
  4. LAMOTRIGINE [Concomitant]
  5. VIIBRYD [Concomitant]
  6. METHYLIN [Concomitant]
  7. PENICILLIN V [Concomitant]
  8. POTASSIUM [Concomitant]
  9. PRAVASTATIN SODIUM [Concomitant]
  10. OXYCODONE HCL [Concomitant]
  11. CAPHOSOL [Concomitant]
  12. NOXAFIL [Concomitant]
  13. TRIAMCINOLONE ACETONIDE [Concomitant]
  14. BACTRIM [Concomitant]
  15. ZOFRAN [Concomitant]
  16. LIVALO [Concomitant]
  17. OMEGA 3 [Concomitant]
  18. CELLCEPT [Concomitant]
     Dosage: UNK
  19. FENTANYL [Concomitant]
     Dosage: UNK
  20. COLACE [Concomitant]
  21. CALCITRIOL [Concomitant]
     Dosage: UNK
  22. ABILIFY [Concomitant]
     Dosage: UNK
  23. ACTOS [Concomitant]
     Dosage: UNK
  24. ACYCLOVIR [Concomitant]
  25. ATARAX                                  /CAN/ [Concomitant]
     Dosage: UNK
  26. PROTONIX [Concomitant]
     Dosage: UNK
  27. PREDNISONE [Concomitant]
  28. EFEXOR XR [Concomitant]
     Dosage: UNK
  29. PROCHLORPERAZINE MALEATE [Concomitant]
     Dosage: UNK
  30. CLONAZEPAM [Concomitant]
     Dosage: UNK
  31. ASACOL [Concomitant]
     Dosage: UNK
  32. ACTIGALL [Concomitant]
     Dosage: UNK

REACTIONS (4)
  - Alopecia [Not Recovered/Not Resolved]
  - Stomatitis [Not Recovered/Not Resolved]
  - Night sweats [Not Recovered/Not Resolved]
  - Muscular weakness [Not Recovered/Not Resolved]
